FAERS Safety Report 9312380 (Version 2)
Quarter: 2013Q3

REPORT INFORMATION
  Report Type: Spontaneous
  Country: CA (occurrence: CA)
  Receive Date: 20130528
  Receipt Date: 20130909
  Transmission Date: 20140515
  Serious: Yes (Death, Other)
  Sender: FDA-Public Use
  Company Number: CA-OTSUKA-US-2013-10988

PATIENT
  Sex: 0

DRUGS (13)
  1. BUSULFEX [Suspect]
     Indication: B-CELL LYMPHOMA
     Dosage: 12.0 MG/KG, UNK
     Route: 042
  2. CARBOPLATIN [Suspect]
     Indication: B-CELL LYMPHOMA
     Route: 042
  3. CISPLATIN [Suspect]
     Indication: B-CELL LYMPHOMA
  4. CYCLOPHOSPHAMIDE [Suspect]
     Indication: B-CELL LYMPHOMA
     Dosage: 2000 MG/M2, QD
     Route: 042
  5. DOXORUBICIN HYDROCHLORIDE [Suspect]
     Indication: B-CELL LYMPHOMA
  6. ETOPOSIDE [Suspect]
     Indication: B-CELL LYMPHOMA
  7. FLUDARA [Suspect]
     Indication: B-CELL LYMPHOMA
     Dosage: 250 MG/M2, UNK
     Route: 042
  8. GRANULOCYTE COLONY STIMULATING FACTOR [Suspect]
     Indication: B-CELL LYMPHOMA
  9. IFOSFAMIDE [Suspect]
     Indication: B-CELL LYMPHOMA
     Route: 042
  10. PREDNISONE [Suspect]
     Indication: B-CELL LYMPHOMA
  11. RITUXAN [Suspect]
     Indication: B-CELL LYMPHOMA
     Route: 042
  12. VINCRISTINE SULFATE [Suspect]
     Indication: B-CELL LYMPHOMA
  13. ZEVALIN [Suspect]
     Indication: B-CELL LYMPHOMA

REACTIONS (2)
  - Meningitis tuberculous [Fatal]
  - Sepsis [Fatal]
